FAERS Safety Report 5214008-X (Version None)
Quarter: 2007Q1

REPORT INFORMATION
  Report Type: 
  Country: None (occurrence: None)
  Receive Date: 20070122
  Receipt Date: 20070116
  Transmission Date: 20070707
  Serious: Yes (Death, Hospitalization)
  Sender: FDA-Public Use
  Company Number: FR-JNJFOC-20070104047

PATIENT
  Age: 92 Year
  Sex: Female

DRUGS (3)
  1. DURAGESIC-100 [Suspect]
     Route: 062
  2. DURAGESIC-100 [Suspect]
     Indication: PAIN
     Route: 062
  3. TRAMADOL HCL [Concomitant]
     Route: 065

REACTIONS (4)
  - DISTURBANCE IN ATTENTION [None]
  - INFECTION [None]
  - MIOSIS [None]
  - MYOCLONUS [None]
